FAERS Safety Report 21835246 (Version 1)
Quarter: 2023Q1

REPORT INFORMATION
  Report Type: Report from Study
  Country: US (occurrence: US)
  Receive Date: 20230109
  Receipt Date: 20230109
  Transmission Date: 20230417
  Serious: No
  Sender: FDA-Public Use
  Company Number: US-ABBVIE-4233296

PATIENT
  Sex: Female

DRUGS (6)
  1. HUMIRA [Suspect]
     Active Substance: ADALIMUMAB
     Indication: Pain
     Route: 058
  2. VITAMIN B-12 SUB 5000MCG [Concomitant]
     Indication: Product used for unknown indication
  3. ALBUTEROL SU AER 108 (90 [Concomitant]
     Indication: Product used for unknown indication
  4. BACLOFEN [Concomitant]
     Active Substance: BACLOFEN
     Indication: Product used for unknown indication
  5. SYMBICORT AER 160-4.5MCG [Concomitant]
     Indication: Product used for unknown indication
  6. PREGABALIN CAP 75MG [Concomitant]
     Indication: Product used for unknown indication

REACTIONS (1)
  - Wrong product administered [Unknown]
